FAERS Safety Report 4359925-8 (Version None)
Quarter: 2004Q2

REPORT INFORMATION
  Report Type: 
  Country: None (occurrence: None)
  Receive Date: 20040518
  Receipt Date: 20040518
  Transmission Date: 20050107
  Serious: Yes (Hospitalization)
  Sender: FDA-Public Use
  Company Number: None

PATIENT
  Sex: Male
  Weight: 127.9144 kg

DRUGS (11)
  1. WARFARIN SODIUM [Suspect]
     Indication: ATRIAL FIBRILLATION
     Dosage: 5 MG QHS ORAL
     Route: 048
     Dates: start: 20040316, end: 20040328
  2. PLAVIX [Concomitant]
  3. COUMADIN [Concomitant]
  4. SIMVASTATIN [Concomitant]
  5. TERAZOSIN HCL [Concomitant]
  6. NITROGLYCERIN [Concomitant]
  7. TRAMADOL HCL [Concomitant]
  8. ASPIRIN WITH CODEINE [Concomitant]
  9. TOPROL-XL [Concomitant]
  10. ASPIRIN [Concomitant]
  11. IRBESARTAN [Concomitant]

REACTIONS (3)
  - HAEMATOCHEZIA [None]
  - HAEMATURIA [None]
  - INTERNATIONAL NORMALISED RATIO INCREASED [None]
